FAERS Safety Report 4937128-3 (Version None)
Quarter: 2006Q1

REPORT INFORMATION
  Report Type: 
  Country: None (occurrence: None)
  Receive Date: 20060307
  Receipt Date: 20060307
  Transmission Date: 20060701
  Serious: Yes (Other)
  Sender: FDA-Public Use
  Company Number: None

PATIENT
  Age: 33 Year
  Sex: Female
  Weight: 55.6 kg

DRUGS (1)
  1. ALDARA [Suspect]
     Indication: CHEILITIS
     Dosage: SMALL AMOUNT  QD TOPICAL
     Route: 061
     Dates: start: 20060217, end: 20060224

REACTIONS (4)
  - BACK PAIN [None]
  - FATIGUE [None]
  - MALAISE [None]
  - PYREXIA [None]
